FAERS Safety Report 20631470 (Version 1)
Quarter: 2022Q1

REPORT INFORMATION
  Report Type: Spontaneous
  Country: US (occurrence: US)
  Receive Date: 20220324
  Receipt Date: 20220324
  Transmission Date: 20220424
  Serious: No
  Sender: FDA-Public Use
  Company Number: US-BAYER-2022A042863

PATIENT

DRUGS (1)
  1. MIRALAX [Suspect]
     Active Substance: POLYETHYLENE GLYCOL 3350
     Indication: Product used for unknown indication
     Dosage: ONE AND A HALF TEASE SPOON, QOD
     Route: 048

REACTIONS (3)
  - Pain [Unknown]
  - Abdominal distension [Unknown]
  - Incorrect dose administered [None]
